FAERS Safety Report 9247732 (Version 2)
Quarter: 2013Q2

REPORT INFORMATION
  Report Type: Spontaneous
  Country: NO (occurrence: NO)
  Receive Date: 20130423
  Receipt Date: 20130506
  Transmission Date: 20140414
  Serious: Yes (Life-Threatening, Hospitalization)
  Sender: FDA-Public Use
  Company Number: NO-NOVOPROD-375901

PATIENT
  Age: 58 Year
  Sex: Male

DRUGS (9)
  1. VICTOZA [Suspect]
     Indication: DIABETES MELLITUS
     Dosage: 1.8 MG, QD
     Dates: start: 20120210
  2. JANUVIA [Suspect]
     Indication: DIABETES MELLITUS
     Dosage: 100 ?G, BID
     Dates: start: 20100617, end: 20120210
  3. BYETTA [Suspect]
     Indication: DIABETES MELLITUS
     Dosage: 10 ?G, BID
     Dates: start: 20100617, end: 20120210
  4. ATACAND PLUS [Concomitant]
     Indication: HYPERTENSION
  5. ADALAT OROS [Concomitant]
     Indication: HYPERTENSION
     Dosage: 30 MG, BID
  6. GLIMEPIRIDE [Concomitant]
     Indication: DIABETES MELLITUS
     Dosage: 2 MG, QD
  7. ALBYL-E [Concomitant]
     Indication: PROPHYLAXIS
     Dosage: 75 MG, QD
  8. METOPROLOL [Concomitant]
     Indication: HYPERTENSION
     Dosage: 150 MG, QD
  9. SIMVASTATIN [Concomitant]
     Indication: HYPERCHOLESTEROLAEMIA
     Dosage: 10 MG, QD

REACTIONS (1)
  - Hepatic failure [Not Recovered/Not Resolved]
